FAERS Safety Report 11199340 (Version 1)
Quarter: 2015Q2

REPORT INFORMATION
  Report Type: Spontaneous
  Country: US (occurrence: None)
  Receive Date: 20150608
  Receipt Date: 20150608
  Transmission Date: 20150821
  Serious: Yes (Hospitalization)
  Sender: FDA-Public Use
  Company Number: HYP201503-000030

PATIENT
  Age: 20 Year
  Sex: Male

DRUGS (2)
  1. ARGININE [Concomitant]
     Active Substance: ARGININE
  2. RAVICTI [Suspect]
     Active Substance: GLYCEROL PHENYLBUTYRATE
     Indication: ARGININOSUCCINATE SYNTHETASE DEFICIENCY
     Route: 048
     Dates: start: 201309

REACTIONS (4)
  - Liver function test abnormal [None]
  - Hyperammonaemia [None]
  - Drug ineffective [None]
  - Steatorrhoea [None]

NARRATIVE: CASE EVENT DATE: 20150309
